FAERS Safety Report 5092139-5 (Version None)
Quarter: 2006Q3

REPORT INFORMATION
  Report Type: 
  Country: None (occurrence: None)
  Receive Date: 20060825
  Receipt Date: 20060809
  Transmission Date: 20061208
  Serious: Yes (Other)
  Sender: FDA-Public Use
  Company Number: 111957ISR

PATIENT
  Age: 65 Year
  Sex: Male

DRUGS (3)
  1. CARBOPLATIN [Suspect]
     Indication: MANTLE CELL LYMPHOMA
  2. ETOPOSIDE [Suspect]
     Indication: MANTLE CELL LYMPHOMA
  3. TREOSULFAN [Suspect]
     Indication: MANTLE CELL LYMPHOMA

REACTIONS (5)
  - ARRHYTHMIA SUPRAVENTRICULAR [None]
  - HAEMOGLOBIN DECREASED [None]
  - PAROXYSMAL ARRHYTHMIA [None]
  - PERICARDITIS [None]
  - PLATELET COUNT DECREASED [None]
